FAERS Safety Report 17336457 (Version 1)
Quarter: 2020Q1

REPORT INFORMATION
  Report Type: Report from Study
  Country: US (occurrence: US)
  Receive Date: 20200128
  Receipt Date: 20200128
  Transmission Date: 20200409
  Serious: Yes (Death)
  Sender: FDA-Public Use
  Company Number: US-MYLANLABS-2020M1008922

PATIENT
  Sex: Male

DRUGS (1)
  1. CLOFARABINE. [Suspect]
     Active Substance: CLOFARABINE
     Indication: BONE MARROW CONDITIONING REGIMEN
     Dosage: PLANNED TO RECEIVE 2-HOUR IV INFUSION OF CLOFARABINE DAILY FOR 5 DAYS (DAYS -6 TO -2)
     Route: 042

REACTIONS (3)
  - Acute kidney injury [Fatal]
  - Multiple organ dysfunction syndrome [Fatal]
  - Renal failure [Fatal]
